FAERS Safety Report 7237084-1 (Version None)
Quarter: 2011Q1

REPORT INFORMATION
  Report Type: 
  Country: None (occurrence: None)
  Receive Date: 20110121
  Receipt Date: 20110113
  Transmission Date: 20110831
  Serious: Yes (Hospitalization, Other)
  Sender: FDA-Public Use
  Company Number: US-ASTRAZENECA-2006UW16345

PATIENT
  Age: 11963 Day
  Sex: Female
  Weight: 99.8 kg

DRUGS (22)
  1. SEROQUEL [Suspect]
     Route: 048
     Dates: start: 20040405, end: 20040731
  2. GEODON [Concomitant]
     Dates: start: 20050401, end: 20060501
  3. SEROQUEL [Suspect]
     Indication: DEPRESSION
     Route: 048
     Dates: start: 20040209
  4. ABILIFY [Concomitant]
     Dates: start: 20050701, end: 20050801
  5. PHENTERMINE [Concomitant]
     Dates: start: 20040217
  6. BENICAR [Concomitant]
     Dates: start: 20060517
  7. ZYPREXA [Concomitant]
     Dates: start: 20061001
  8. LITHIUM [Concomitant]
     Dates: start: 20060503
  9. CYMBALTA [Concomitant]
     Dates: start: 20060503
  10. REMERON [Concomitant]
     Dates: start: 20060503
  11. LEXAPRO [Concomitant]
     Dates: start: 20040209
  12. SEROQUEL [Suspect]
     Indication: BIPOLAR DISORDER
     Route: 048
     Dates: start: 20040209
  13. RISPERDAL [Suspect]
     Route: 065
     Dates: start: 20030601, end: 20040301
  14. CELEXA [Concomitant]
     Dates: start: 20030908
  15. ORPHENADRINE CITRATE [Concomitant]
     Dates: start: 20040302
  16. ADIPEX [Concomitant]
     Indication: WEIGHT CONTROL
     Dates: start: 20050101
  17. LITHOTABS [Concomitant]
     Route: 048
     Dates: start: 20060503
  18. AMBIEN [Concomitant]
     Dates: start: 20040123
  19. LASIX [Concomitant]
     Dates: start: 20060517
  20. SEROQUEL [Suspect]
     Route: 048
     Dates: start: 20040405, end: 20040731
  21. GEODON [Concomitant]
     Dosage: 80 MG TWO PO HS
     Route: 048
     Dates: start: 20060503
  22. TRILAFON [Concomitant]
     Dates: start: 20050801

REACTIONS (13)
  - TYPE 1 DIABETES MELLITUS [None]
  - WEIGHT INCREASED [None]
  - HYPERLIPIDAEMIA [None]
  - SYNCOPE [None]
  - ASTHENIA [None]
  - DIABETIC NEUROPATHY [None]
  - DIABETES MELLITUS INADEQUATE CONTROL [None]
  - VISION BLURRED [None]
  - LOSS OF CONSCIOUSNESS [None]
  - AFFECTIVE DISORDER [None]
  - BLOOD CHOLESTEROL INCREASED [None]
  - TYPE 2 DIABETES MELLITUS [None]
  - HYPERGLYCAEMIA [None]
